FAERS Safety Report 21996904 (Version 1)
Quarter: 2023Q1

REPORT INFORMATION
  Report Type: Spontaneous
  Country: FR (occurrence: FR)
  Receive Date: 20230215
  Receipt Date: 20230215
  Transmission Date: 20230418
  Serious: Yes (Hospitalization, Other)
  Sender: FDA-Public Use
  Company Number: None

PATIENT
  Age: 70 Year
  Sex: Female
  Weight: 57 kg

DRUGS (2)
  1. TRODELVY [Suspect]
     Active Substance: SACITUZUMAB GOVITECAN-HZIY
     Indication: Breast cancer metastatic
     Dosage: 570 MG, CYCLICAL
     Route: 042
     Dates: start: 20221213
  2. IBUPROFEN [Suspect]
     Active Substance: IBUPROFEN
     Indication: Hypertension
     Dosage: 400 MG, QD
     Route: 048
     Dates: start: 20221223

REACTIONS (1)
  - Terminal ileitis [Recovered/Resolved]

NARRATIVE: CASE EVENT DATE: 20221227
